FAERS Safety Report 20626698 (Version 3)
Quarter: 2022Q2

REPORT INFORMATION
  Report Type: Spontaneous
  Country: US (occurrence: US)
  Receive Date: 20220323
  Receipt Date: 20220608
  Transmission Date: 20220721
  Serious: No
  Sender: FDA-Public Use
  Company Number: US-KARYOPHARM-2022KPT000346

PATIENT

DRUGS (2)
  1. XPOVIO [Suspect]
     Active Substance: SELINEXOR
     Indication: Plasma cell myeloma
     Dosage: 60 MG, WEEKLY
     Route: 048
     Dates: start: 20220302, end: 202204
  2. POMALYST [Concomitant]
     Active Substance: POMALIDOMIDE

REACTIONS (11)
  - Headache [Not Recovered/Not Resolved]
  - Back pain [Unknown]
  - Fall [Unknown]
  - Diplopia [Unknown]
  - White blood cell count decreased [Unknown]
  - Liver disorder [Unknown]
  - Plasma cell myeloma [Unknown]
  - Fatigue [Unknown]
  - Platelet count decreased [Unknown]
  - Decreased appetite [Unknown]
  - Neutrophil count decreased [Unknown]

NARRATIVE: CASE EVENT DATE: 20220101
